FAERS Safety Report 12804861 (Version 3)
Quarter: 2021Q2

REPORT INFORMATION
  Report Type: Spontaneous
  Country: CA (occurrence: CA)
  Receive Date: 20161003
  Receipt Date: 20210504
  Transmission Date: 20210716
  Serious: Yes (Death, Other)
  Sender: FDA-Public Use
  Company Number: CA-BAXTER-2016BAX049595

PATIENT
  Age: 20 Month
  Sex: Male

DRUGS (8)
  1. CISPLATIN. [Suspect]
     Active Substance: CISPLATIN
     Indication: ATYPICAL TERATOID/RHABDOID TUMOUR OF CNS
     Dosage: SOLUTION INTRAVENOUS
     Route: 042
  2. VINCRISTINE SULFATE. [Suspect]
     Active Substance: VINCRISTINE SULFATE
     Indication: ATYPICAL TERATOID/RHABDOID TUMOUR OF CNS
     Dosage: DOSAGE FORM: NOT SPECIFIED
     Route: 065
  3. PROCYTOX (CYCLOPHOSPHAMIDE) 2000MG/VIAL [Suspect]
     Active Substance: CYCLOPHOSPHAMIDE
     Indication: ATYPICAL TERATOID/RHABDOID TUMOUR OF CNS
     Dosage: DOSAGE FORM: POWDER FOR SOLUTION INTRAVENOUS
     Route: 065
  4. MICAFUNGIN SODIUM [Concomitant]
     Active Substance: MICAFUNGIN SODIUM
     Indication: HEPATIC CANDIDIASIS
     Route: 065
  5. METHOTREXATE. [Suspect]
     Active Substance: METHOTREXATE
     Indication: ATYPICAL TERATOID/RHABDOID TUMOUR OF CNS
     Dosage: UNIT DOSE: 8.0 (UNITS NOT REPORTED), DOSAGE FORM: NOT SPECIFIED
     Route: 042
  6. FILGRASTIM [Suspect]
     Active Substance: FILGRASTIM
     Indication: PROPHYLAXIS
     Route: 065
  7. ETOPOSIDE. [Suspect]
     Active Substance: ETOPOSIDE
     Indication: ATYPICAL TERATOID/RHABDOID TUMOUR OF CNS
     Dosage: DOSAGE FORM: NOT SPECIFIED
     Route: 065
  8. GRANULOCYTE COLONY STIMULATING FACTOR [Suspect]
     Active Substance: GRANULOCYTE COLONY-STIMULATING FACTOR NOS
     Indication: PROPHYLAXIS
     Dosage: DOSAGE FORM: NOT SPECIFIED
     Route: 065

REACTIONS (20)
  - Neutropenia [Fatal]
  - Hepatic necrosis [Recovered/Resolved]
  - Chills [Not Recovered/Not Resolved]
  - Rhinorrhoea [Fatal]
  - Disease recurrence [Fatal]
  - Adenoviral hepatitis [Recovered/Resolved]
  - Hepatic necrosis [Fatal]
  - Hypogammaglobulinaemia [Fatal]
  - Pyrexia [Fatal]
  - Tachycardia [Fatal]
  - Clostridium difficile infection [Not Recovered/Not Resolved]
  - Cystitis haemorrhagic [Fatal]
  - Diarrhoea [Fatal]
  - Cystitis haemorrhagic [Recovered/Resolved]
  - Hypotension [Fatal]
  - Abdominal discomfort [Fatal]
  - Rhabdoid tumour [Fatal]
  - Product use in unapproved indication [Not Recovered/Not Resolved]
  - Adenovirus infection [Fatal]
  - Hepatic candidiasis [Fatal]
